FAERS Safety Report 9552524 (Version 6)
Quarter: 2014Q2

REPORT INFORMATION
  Report Type: Spontaneous
  Country: US (occurrence: US)
  Receive Date: 20130925
  Receipt Date: 20140523
  Transmission Date: 20141212
  Serious: Yes (Death, Hospitalization, Other)
  Sender: FDA-Public Use
  Company Number: US-PFIZER INC-2013271119

PATIENT
  Age: 70 Year
  Sex: Female

DRUGS (20)
  1. SUTENT [Suspect]
     Indication: RENAL CANCER
     Dosage: 37.5 MG, CYCLIC DAILY 3 WEEKS ON AND 1 WEEK OFF
     Dates: start: 20130902
  2. SUTENT [Suspect]
     Dosage: 37.5 MG, CYCLIC FOR 28 DAY (SECOND CYCLE)
     Dates: start: 201310
  3. SUTENT [Suspect]
     Dosage: 37.5 MG, CYCLIC (2 WEEKS ON, 1 WEEK OFF)
     Dates: start: 20131111
  4. SUTENT [Suspect]
     Dosage: 37.5 MG, CYCLIC (2 WEEKS ON, 1 WEEK OFF) NEW CYCLE
     Dates: start: 201312, end: 20131216
  5. ZOMETA [Suspect]
     Dosage: UNK, MONTHLY
     Route: 042
  6. SIMVASTATIN [Concomitant]
     Dosage: 40 MG, 1X/DAY (AT BEDTIME)
  7. AMLODIPINE [Concomitant]
     Dosage: 10 MG, 2X/DAY
     Route: 048
  8. ENDOCET [Concomitant]
     Dosage: OXYCODONE HYDROCHLORIDE 10MG/ PARACETAMOL 325MG, AS NEEDED
  9. PHENERGAN [Concomitant]
     Dosage: 25 MG, AS NEEDED
     Route: 048
  10. HYDROCODONE [Concomitant]
     Dosage: 10/500, AS NEEDED
  11. CIPRO [Concomitant]
     Dosage: 500 MG, 2X/DAY
     Route: 048
  12. MAGNESIUM OXIDE [Concomitant]
     Dosage: 400 MG, DAILY
     Route: 048
  13. POTASSIUM [Concomitant]
     Dosage: UNK
  14. PANCREASE [Concomitant]
     Dosage: UNK, BEFORE MEALS
  15. TORSEMIDE [Concomitant]
     Dosage: 20 MG, AS NEEDED
  16. PLAVIX [Concomitant]
     Dosage: 75 MG, DAILY
  17. JUICE PLUS ^GARDEN BLEND^ [Concomitant]
     Dosage: UNK
  18. JUICE PLUS ^ORCHARD BLEND^ [Concomitant]
     Dosage: UNK
  19. OXYCONTIN [Concomitant]
     Dosage: UNK
  20. MORPHINE [Concomitant]
     Dosage: UNK

REACTIONS (15)
  - Death [Fatal]
  - Wound infection [Unknown]
  - Diarrhoea [Recovered/Resolved]
  - Vomiting [Not Recovered/Not Resolved]
  - Nausea [Not Recovered/Not Resolved]
  - Dehydration [Unknown]
  - Electrolyte imbalance [Unknown]
  - Blister [Recovered/Resolved]
  - Oral pain [Unknown]
  - Constipation [Recovered/Resolved]
  - Bone pain [Recovering/Resolving]
  - Skin exfoliation [Not Recovered/Not Resolved]
  - Pain in extremity [Not Recovered/Not Resolved]
  - Skin ulcer [Not Recovered/Not Resolved]
  - Blood pressure fluctuation [Unknown]
